FAERS Safety Report 7583384-5 (Version None)
Quarter: 2011Q2

REPORT INFORMATION
  Report Type: 
  Country: None (occurrence: None)
  Receive Date: 20110623
  Receipt Date: 20110608
  Transmission Date: 20111010
  Serious: Yes (Other)
  Sender: FDA-Public Use
  Company Number: 956416

PATIENT
  Age: 68 Year
  Sex: Female
  Weight: 93.5 kg

DRUGS (4)
  1. MORPHINE SULFATE [Suspect]
     Indication: POSTOPERATIVE ANALGESIA
     Dosage: 250 UG MICROGRAM(S), INTRATHECAL
     Route: 037
     Dates: start: 20110510, end: 20110510
  2. BUPIVACAINE HCL [Concomitant]
  3. ADALAT [Concomitant]
  4. (BETALOC /00376903/) [Concomitant]

REACTIONS (2)
  - HYPOTENSION [None]
  - DIZZINESS [None]
